FAERS Safety Report 7372109-4 (Version None)
Quarter: 2011Q1

REPORT INFORMATION
  Report Type: 
  Country: None (occurrence: None)
  Receive Date: 20110324
  Receipt Date: 20110310
  Transmission Date: 20110831
  Serious: Yes (Other)
  Sender: FDA-Public Use
  Company Number: DE-SANOFI-AVENTIS-2011SA014910

PATIENT
  Sex: Female

DRUGS (3)
  1. CO-DIOVAN [Concomitant]
     Route: 065
  2. MULTAQ [Suspect]
     Route: 048
     Dates: start: 20100401, end: 20110201
  3. ACETYLSALICYLIC ACID [Concomitant]
     Route: 065

REACTIONS (2)
  - TORSADE DE POINTES [None]
  - ELECTROCARDIOGRAM QT PROLONGED [None]
